FAERS Safety Report 22588736 (Version 1)
Quarter: 2023Q2

REPORT INFORMATION
  Report Type: Spontaneous
  Country: US (occurrence: None)
  Receive Date: 20230608
  Receipt Date: 20230608
  Transmission Date: 20230721
  Serious: Yes (Death)
  Sender: FDA-Public Use
  Company Number: None

PATIENT
  Age: 73 Year
  Sex: Male
  Weight: 80.74 kg

DRUGS (23)
  1. TRELSTAR [Suspect]
     Active Substance: TRIPTORELIN PAMOATE
     Indication: Prostate cancer
     Dosage: 11.25MG 12 WEEKS IM?
     Route: 041
     Dates: start: 202208, end: 20230607
  2. ACETAMINOPHNE [Concomitant]
  3. ACULAR [Concomitant]
     Active Substance: KETOROLAC TROMETHAMINE
  4. ACYCLOVIR [Concomitant]
     Active Substance: ACYCLOVIR
  5. ALBUTEROL SULFATE [Concomitant]
     Active Substance: ALBUTEROL SULFATE
  6. ALPRAZOLAM [Concomitant]
     Active Substance: ALPRAZOLAM
  7. AMLODIPINE [Concomitant]
     Active Substance: AMLODIPINE BESYLATE
  8. ATORVASTATIN [Concomitant]
     Active Substance: ATORVASTATIN
  9. CASODEX [Concomitant]
     Active Substance: BICALUTAMIDE
  10. DOCUSATE [Concomitant]
     Active Substance: DOCUSATE
  11. FLOMAX [Concomitant]
     Active Substance: TAMSULOSIN HYDROCHLORIDE
  12. IBUPROFEN [Concomitant]
     Active Substance: IBUPROFEN
  13. JANUVIA [Concomitant]
     Active Substance: SITAGLIPTIN PHOSPHATE
  14. LACTULOSE [Concomitant]
     Active Substance: LACTULOSE
  15. LINZESS [Concomitant]
     Active Substance: LINACLOTIDE
  16. LISINOPRIL [Concomitant]
     Active Substance: LISINOPRIL
  17. LUPRON [Concomitant]
     Active Substance: LEUPROLIDE ACETATE
  18. METFORMIN [Concomitant]
     Active Substance: METFORMIN HYDROCHLORIDE
  19. PROSCAR [Concomitant]
     Active Substance: FINASTERIDE
  20. RAPAFLO [Concomitant]
     Active Substance: SILODOSIN
  21. SPIRIVA [Concomitant]
     Active Substance: TIOTROPIUM BROMIDE MONOHYDRATE
  22. WIXELA INHUB [Concomitant]
     Active Substance: FLUTICASONE PROPIONATE\SALMETEROL XINAFOATE
  23. XTANDI [Concomitant]
     Active Substance: ENZALUTAMIDE

REACTIONS (1)
  - Death [None]

NARRATIVE: CASE EVENT DATE: 20230607
